FAERS Safety Report 13496467 (Version 2)
Quarter: 2017Q2

REPORT INFORMATION
  Report Type: Spontaneous
  Country: US (occurrence: US)
  Receive Date: 20170428
  Receipt Date: 20170428
  Transmission Date: 20170830
  Serious: No
  Sender: FDA-Public Use
  Company Number: US-JAZZ-2017-US-002857

PATIENT
  Sex: Female

DRUGS (36)
  1. FORTAMET [Concomitant]
     Active Substance: METFORMIN HYDROCHLORIDE
  2. GEODON [Concomitant]
     Active Substance: ZIPRASIDONE HYDROCHLORIDE\ZIPRASIDONE MESYLATE
  3. NAPROXEN. [Concomitant]
     Active Substance: NAPROXEN
  4. FLEXERIL [Concomitant]
     Active Substance: CYCLOBENZAPRINE HYDROCHLORIDE
  5. XANAX [Concomitant]
     Active Substance: ALPRAZOLAM
  6. XYREM [Suspect]
     Active Substance: SODIUM OXYBATE
     Indication: INSOMNIA
     Dosage: 2.25G, BID
     Route: 048
     Dates: start: 201501, end: 2015
  7. COENZYME Q10 [Concomitant]
     Active Substance: UBIDECARENONE
  8. AZITHROMYCIN ANHYDROUS. [Concomitant]
     Active Substance: AZITHROMYCIN ANHYDROUS
  9. XYREM [Suspect]
     Active Substance: SODIUM OXYBATE
     Dosage: 4G, BID
     Route: 048
     Dates: start: 201612
  10. KLONOPIN [Concomitant]
     Active Substance: CLONAZEPAM
  11. AMBIEN [Concomitant]
     Active Substance: ZOLPIDEM TARTRATE
  12. RESTASIS [Concomitant]
     Active Substance: CYCLOSPORINE
  13. LIOTHYRONINE SOD. [Concomitant]
  14. MINOCYCLINE HCL [Concomitant]
     Active Substance: MINOCYCLINE HYDROCHLORIDE
  15. LYRICA [Concomitant]
     Active Substance: PREGABALIN
  16. JANUVIA [Concomitant]
     Active Substance: SITAGLIPTIN PHOSPHATE
  17. KLOR-CON [Concomitant]
     Active Substance: POTASSIUM CHLORIDE
  18. ZOLPIDEM TARTRATE. [Concomitant]
     Active Substance: ZOLPIDEM TARTRATE
  19. BENADRYL [Concomitant]
     Active Substance: DIPHENHYDRAMINE HYDROCHLORIDE
  20. FLEXERIL [Concomitant]
     Active Substance: CYCLOBENZAPRINE HYDROCHLORIDE
  21. DEXTROAMPHETAMINE                  /00016601/ [Concomitant]
     Active Substance: DEXTROAMPHETAMINE
  22. ALKA-SELTZER PLUS COLD             /00446801/ [Concomitant]
  23. LEVOTHYROXINE. [Concomitant]
     Active Substance: LEVOTHYROXINE
  24. FISH OIL 1-A-DAY + VITAMIN D3 [Concomitant]
  25. LASIX [Concomitant]
     Active Substance: FUROSEMIDE
  26. VITAMIN B12 [Concomitant]
     Active Substance: CYANOCOBALAMIN
  27. EPINEPHRINE                        /00003902/ [Concomitant]
  28. CYMBALTA [Concomitant]
     Active Substance: DULOXETINE HYDROCHLORIDE
  29. XYREM [Suspect]
     Active Substance: SODIUM OXYBATE
     Dosage: DOSE ADJUSTMENT
     Route: 048
     Dates: start: 2015, end: 2016
  30. BELSOMRA [Concomitant]
     Active Substance: SUVOREXANT
  31. CYTOMEL [Concomitant]
     Active Substance: LIOTHYRONINE SODIUM
  32. AGGRENOX [Concomitant]
     Active Substance: ASPIRIN\DIPYRIDAMOLE
  33. ALPRAZOLAM. [Concomitant]
     Active Substance: ALPRAZOLAM
  34. CHLOROQUINE. [Concomitant]
     Active Substance: CHLOROQUINE
  35. IMITREX [Concomitant]
     Active Substance: SUMATRIPTAN SUCCINATE
  36. METFORMIN [Concomitant]
     Active Substance: METFORMIN HYDROCHLORIDE

REACTIONS (1)
  - Feeling abnormal [Unknown]
